FAERS Safety Report 8596572-6 (Version None)
Quarter: 2012Q3

REPORT INFORMATION
  Report Type: 
  Country: None (occurrence: None)
  Receive Date: 20120815
  Receipt Date: 20120807
  Transmission Date: 20120928
  Serious: Yes (Hospitalization)
  Sender: FDA-Public Use
  Company Number: US-BRISTOL-MYERS SQUIBB COMPANY-16842312

PATIENT
  Age: 58 Year
  Sex: Male

DRUGS (1)
  1. SUSTIVA [Suspect]
     Dosage: A LONG TIME

REACTIONS (1)
  - INTESTINAL MALROTATION [None]
